FAERS Safety Report 9177759 (Version 1)
Quarter: 2012Q4

REPORT INFORMATION
  Report Type: 
  Country: US (occurrence: US)
  Receive Date: 20121009
  Receipt Date: 20121009
  Transmission Date: 20130627
  Serious: Yes (Other)
  Sender: FDA-Public Use
  Company Number: US-RB-037559-12

PATIENT
  Age: 26 None
  Sex: Female

DRUGS (2)
  1. SUBOXONE FILM [Suspect]
     Indication: DRUG DEPENDENCE
     Dosage: Suboxone film; Dosing details unknown
     Route: 060
     Dates: start: 201011, end: 201109
  2. SUBUTEX [Suspect]
     Indication: DRUG DEPENDENCE
     Dosage: Tapered to 0.5 mg and stopped
     Route: 060
     Dates: start: 201109, end: 201202

REACTIONS (5)
  - Wrong technique in drug usage process [Recovered/Resolved]
  - Exposure during pregnancy [Recovered/Resolved]
  - Insomnia [Not Recovered/Not Resolved]
  - Premature delivery [Recovered/Resolved]
  - Hypotension [Unknown]
